FAERS Safety Report 6710536-6 (Version None)
Quarter: 2010Q2

REPORT INFORMATION
  Report Type: 
  Country: None (occurrence: None)
  Receive Date: 20100504
  Receipt Date: 20081027
  Transmission Date: 20101027
  Serious: Yes (Other)
  Sender: FDA-Public Use
  Company Number: CN-BAYER-200831411GPV

PATIENT
  Age: 42 Year
  Sex: Female
  Weight: 58 kg

DRUGS (1)
  1. ULTRAVIST 300 [Suspect]
     Indication: COMPUTERISED TOMOGRAM KIDNEY
     Dosage: TOTAL DAILY DOSE: 80 ML
     Route: 042
     Dates: start: 20081027, end: 20081027

REACTIONS (2)
  - HAEMATEMESIS [None]
  - NAUSEA [None]
